FAERS Safety Report 6134621-5 (Version None)
Quarter: 2009Q1

REPORT INFORMATION
  Report Type: 
  Country: None (occurrence: None)
  Receive Date: 20090327
  Receipt Date: 20090316
  Transmission Date: 20090719
  Serious: Yes (Hospitalization, Other)
  Sender: FDA-Public Use
  Company Number: US-JNJFOC-20090304142

PATIENT
  Sex: Male
  Weight: 63.5 kg

DRUGS (3)
  1. REMICADE [Suspect]
     Indication: CROHN'S DISEASE
     Dosage: ONE INFUSION IN 2002 AND ONE TIME PRIOR, DATE UNKNOWN
     Route: 042
  2. MERCAPTOPURINE [Concomitant]
  3. MERCAPTOPURINE [Concomitant]
     Indication: CROHN'S DISEASE

REACTIONS (2)
  - ATRIAL FIBRILLATION [None]
  - CHRONIC MYELOID LEUKAEMIA [None]
